FAERS Safety Report 12984512 (Version 1)
Quarter: 2016Q4

REPORT INFORMATION
  Report Type: Spontaneous
  Country: JP (occurrence: JP)
  Receive Date: 20161129
  Receipt Date: 20161129
  Transmission Date: 20170207
  Serious: Yes (Other)
  Sender: FDA-Public Use
  Company Number: JP-DSJP-DSJ-2016-137656

PATIENT

DRUGS (10)
  1. OLMETEC [Suspect]
     Active Substance: OLMESARTAN MEDOXOMIL
     Indication: PRODUCT USED FOR UNKNOWN INDICATION
     Dosage: 20 MG, QD, AFTER BREAKFAST
     Route: 048
  2. CILOSTAZOL. [Concomitant]
     Active Substance: CILOSTAZOL
     Dosage: 50 MG, BID, AFTER BREAKFAS AND DINNER
     Route: 048
  3. LANSOPRAZOLE. [Concomitant]
     Active Substance: LANSOPRAZOLE
     Dosage: 15 MG, QD, AFTER DINNER
     Route: 048
  4. DISTIGMINE [Concomitant]
     Dosage: 5 MG, QD, AFTER DINNER
     Route: 048
  5. AMLODIPINE [Concomitant]
     Active Substance: AMLODIPINE BESYLATE
     Dosage: 5 MG, QD, AFTER BREAKFAST
     Route: 048
  6. MEVALOTIN [Suspect]
     Active Substance: PRAVASTATIN SODIUM
     Indication: PRODUCT USED FOR UNKNOWN INDICATION
     Dosage: 5 MG, QD, AFTER DINNER
     Route: 048
  7. GLIMEPIRIDE. [Concomitant]
     Active Substance: GLIMEPIRIDE
     Dosage: 2 MG, QD, AFTER BREAKFAST
     Route: 048
  8. URAPIDIL [Concomitant]
     Active Substance: URAPIDIL
     Dosage: 30 MG, BID, AFTER BREAKFAST AND DINNER
     Route: 048
  9. CEFAZOLIN                          /00288502/ [Concomitant]
     Active Substance: CEFAZOLIN SODIUM
     Dosage: 1 G, BID
     Route: 065
  10. LINAGLIPTIN [Concomitant]
     Active Substance: LINAGLIPTIN
     Dosage: 5 MG, QD, AFTER BREAKFAST
     Route: 048

REACTIONS (1)
  - Hypoglycaemia [Unknown]
